FAERS Safety Report 13331490 (Version 1)
Quarter: 2017Q1

REPORT INFORMATION
  Report Type: Spontaneous
  Country: US (occurrence: US)
  Receive Date: 20170314
  Receipt Date: 20170314
  Transmission Date: 20170428
  Serious: No
  Sender: FDA-Public Use
  Company Number: None

PATIENT
  Age: 28 Year
  Sex: Female
  Weight: 155.2 kg

DRUGS (1)
  1. NEXPLANON [Suspect]
     Active Substance: ETONOGESTREL
     Indication: CONTRACEPTION
     Route: 058
     Dates: start: 20160525

REACTIONS (20)
  - Vaginal haemorrhage [None]
  - Back pain [None]
  - Breast pain [None]
  - Oropharyngeal pain [None]
  - Affective disorder [None]
  - Fatigue [None]
  - Weight increased [None]
  - Influenza like illness [None]
  - Abdominal pain upper [None]
  - Hypoaesthesia [None]
  - Anxiety [None]
  - Paraesthesia [None]
  - Chest discomfort [None]
  - Faeces soft [None]
  - Asthenia [None]
  - Vaginal discharge [None]
  - Chest pain [None]
  - Muscle spasms [None]
  - Faeces pale [None]
  - Headache [None]
